FAERS Safety Report 16989840 (Version 1)
Quarter: 2019Q4

REPORT INFORMATION
  Report Type: Spontaneous
  Country: US (occurrence: US)
  Receive Date: 20190920
  Receipt Date: 20190920
  Transmission Date: 20200122
  Serious: Yes (Hospitalization)
  Sender: FDA-Public Use
  Company Number: None

PATIENT
  Age: 58 Year
  Sex: Female

DRUGS (1)
  1. ENBREL [Suspect]
     Active Substance: ETANERCEPT
     Indication: RHEUMATOID ARTHRITIS
     Route: 058
     Dates: start: 20160913

REACTIONS (4)
  - Ingrown hair [None]
  - Musculoskeletal disorder [None]
  - Staphylococcal infection [None]
  - Arthralgia [None]

NARRATIVE: CASE EVENT DATE: 201908
